FAERS Safety Report 21469603 (Version 1)
Quarter: 2022Q4

REPORT INFORMATION
  Report Type: Spontaneous
  Country: US (occurrence: US)
  Receive Date: 20221018
  Receipt Date: 20221018
  Transmission Date: 20230113
  Serious: No
  Sender: FDA-Public Use
  Company Number: US-ADAMAS PHARMA, LLC-2022ADA00802

PATIENT
  Age: 69 Year
  Sex: Male

DRUGS (14)
  1. GOCOVRI [Suspect]
     Active Substance: AMANTADINE
     Indication: On and off phenomenon
     Dosage: 137 MG, 1X/DAY AT BEDTIME
     Route: 048
     Dates: start: 20220311, end: 20220317
  2. GOCOVRI [Suspect]
     Active Substance: AMANTADINE
     Dosage: 274 MG, 1X/DAY AT BEDTIME
     Route: 048
     Dates: start: 20220318
  3. CARBIDOPA\LEVODOPA [Concomitant]
     Active Substance: CARBIDOPA\LEVODOPA
  4. FLAXSEED [Concomitant]
     Active Substance: FLAX SEED
  5. FOLIC ACID [Concomitant]
     Active Substance: FOLIC ACID
  6. GLUCOSAMINE [Concomitant]
     Active Substance: GLUCOSAMINE
  7. KRILL OIL [Concomitant]
     Active Substance: DIETARY SUPPLEMENT\KRILL OIL
  8. LORATADINE [Concomitant]
     Active Substance: LORATADINE
  9. MONTELUKAST SODIUM [Concomitant]
     Active Substance: MONTELUKAST SODIUM
  10. MULTIVITAMIN MEN 50+ [Concomitant]
  11. PRAMIPEXOLE [Concomitant]
     Active Substance: PRAMIPEXOLE
  12. PROBIOTICS NOS [Concomitant]
     Active Substance: PROBIOTICS NOS
  13. PSYLLIUM FIBER [Concomitant]
  14. ROSUVASTATIN [Concomitant]
     Active Substance: ROSUVASTATIN

REACTIONS (8)
  - Sluggishness [Not Recovered/Not Resolved]
  - On and off phenomenon [Not Recovered/Not Resolved]
  - Diplopia [Not Recovered/Not Resolved]
  - Dyspepsia [Not Recovered/Not Resolved]
  - Mood swings [Not Recovered/Not Resolved]
  - Lethargy [Not Recovered/Not Resolved]
  - Dry mouth [Not Recovered/Not Resolved]
  - Anxiety [Not Recovered/Not Resolved]

NARRATIVE: CASE EVENT DATE: 20220301
